FAERS Safety Report 17609555 (Version 1)
Quarter: 2020Q2

REPORT INFORMATION
  Report Type: Report from Study
  Country: JP (occurrence: JP)
  Receive Date: 20200401
  Receipt Date: 20200401
  Transmission Date: 20200713
  Serious: Yes (Hospitalization, Other)
  Sender: FDA-Public Use
  Company Number: JP-ACTELION-A-CH2020-203540

PATIENT
  Age: 5 Year
  Sex: Male

DRUGS (17)
  1. FLUITRAN [Concomitant]
     Active Substance: TRICHLORMETHIAZIDE
     Indication: RIGHT VENTRICULAR FAILURE
     Dosage: 0.15 MG
     Route: 048
  2. ENALAPRIL [Concomitant]
     Active Substance: ENALAPRIL
     Dosage: 1.0 TO 1.5MG B.I.D.
     Route: 048
  3. LASIX [Concomitant]
     Active Substance: FUROSEMIDE
     Dosage: 10-40 MG BID TO TID
     Route: 048
  4. OXYGEN. [Concomitant]
     Active Substance: OXYGEN
     Route: 055
  5. MAINTATE [Concomitant]
     Active Substance: BISOPROLOL FUMARATE
     Indication: RIGHT VENTRICULAR FAILURE
     Dosage: 0.313 MG
     Route: 048
  6. SINGULAIR [Concomitant]
     Active Substance: MONTELUKAST SODIUM
     Indication: ASTHMA
     Route: 048
  7. PIMOBENDAN [Concomitant]
     Active Substance: PIMOBENDAN
     Dosage: 0.07-0.5 MG B.I.D.
     Route: 048
     Dates: start: 20200126
  8. LASIX [Concomitant]
     Active Substance: FUROSEMIDE
     Indication: RIGHT VENTRICULAR FAILURE
     Route: 048
  9. ASPIRIN. [Concomitant]
     Active Substance: ASPIRIN
     Indication: EMBOLISM
     Route: 048
  10. ALESION [Concomitant]
     Active Substance: EPINASTINE HYDROCHLORIDE
     Indication: URTICARIA
     Route: 048
     Dates: start: 20191128
  11. WARFARIN [Concomitant]
     Active Substance: WARFARIN
     Indication: PROPHYLAXIS
     Dosage: 0.3-1 MG Q.D.
     Route: 048
     Dates: start: 20191013
  12. OPSUMIT [Suspect]
     Active Substance: MACITENTAN
     Indication: PULMONARY ARTERIAL HYPERTENSION
     Dosage: 0.5 MG, QD
     Route: 048
     Dates: start: 20180215
  13. PIMOBENDAN [Concomitant]
     Active Substance: PIMOBENDAN
     Indication: RIGHT VENTRICULAR FAILURE
     Route: 048
  14. FLUITRAN [Concomitant]
     Active Substance: TRICHLORMETHIAZIDE
     Dosage: 0.3 MG
     Route: 048
     Dates: start: 20180322
  15. ENALAPRIL [Concomitant]
     Active Substance: ENALAPRIL
     Indication: RIGHT VENTRICULAR FAILURE
     Dosage: 1.5 MG
     Route: 048
  16. ALDACTONE A [Concomitant]
     Active Substance: SPIRONOLACTONE
     Indication: CARDIAC FAILURE CHRONIC
     Dosage: 20-40 MG T.I.D.
     Route: 048
     Dates: start: 20191003
  17. MIYA-BM [Concomitant]
     Active Substance: CLOSTRIDIUM BUTYRICUM SPORES STRAIN M-55
     Indication: DIARRHOEA
     Route: 048
     Dates: start: 20191205

REACTIONS (3)
  - Tricuspid valve replacement [Unknown]
  - Pneumonia bacterial [Recovering/Resolving]
  - Cardiac failure [Recovering/Resolving]

NARRATIVE: CASE EVENT DATE: 20190812
